FAERS Safety Report 5932906-6 (Version None)
Quarter: 2008Q4

REPORT INFORMATION
  Report Type: 
  Country: None (occurrence: None)
  Receive Date: 20081027
  Receipt Date: 20081027
  Transmission Date: 20090506
  Serious: Yes (Life-Threatening, Hospitalization, Other)
  Sender: FDA-Public Use
  Company Number: None

PATIENT
  Age: 73 Year
  Sex: Female
  Weight: 57.6068 kg

DRUGS (1)
  1. COMPAZINE [Suspect]
     Indication: NAUSEA
     Dosage: ONE SHOT IM
     Route: 030
     Dates: start: 20081017, end: 20081018

REACTIONS (3)
  - AMNESIA [None]
  - ANAPHYLACTIC SHOCK [None]
  - WEIGHT INCREASED [None]
